FAERS Safety Report 6930530-X (Version None)
Quarter: 2010Q3

REPORT INFORMATION
  Report Type: 
  Country: None (occurrence: None)
  Receive Date: 20100818
  Receipt Date: 20100810
  Transmission Date: 20110219
  Serious: Yes (Hospitalization, Disabling, Other)
  Sender: FDA-Public Use
  Company Number: A0869491A

PATIENT
  Age: 8 Year
  Sex: Male
  Weight: 24.5 kg

DRUGS (2)
  1. LAMICTAL [Suspect]
     Indication: PARTIAL SEIZURES
     Route: 048
     Dates: start: 20100510, end: 20100530
  2. METADATE CD [Concomitant]
     Route: 048

REACTIONS (20)
  - ABSCESS LIMB [None]
  - BLISTER [None]
  - BLOOD CULTURE POSITIVE [None]
  - DEHYDRATION [None]
  - DYSPNOEA [None]
  - EYE DISCHARGE [None]
  - EYE SWELLING [None]
  - EYELID MARGIN CRUSTING [None]
  - INCORRECT DOSE ADMINISTERED [None]
  - MECHANICAL VENTILATION [None]
  - MOUTH HAEMORRHAGE [None]
  - MUCOSAL INFLAMMATION [None]
  - ORAL MUCOSAL EXFOLIATION [None]
  - RASH PAPULAR [None]
  - RESPIRATORY FAILURE [None]
  - SKIN EXFOLIATION [None]
  - STEVENS-JOHNSON SYNDROME [None]
  - TACHYCARDIA [None]
  - TACHYPNOEA [None]
  - WOUND [None]
